FAERS Safety Report 16980079 (Version 1)
Quarter: 2019Q4

REPORT INFORMATION
  Report Type: Spontaneous
  Country: US (occurrence: US)
  Receive Date: 20191031
  Receipt Date: 20191031
  Transmission Date: 20200122
  Serious: No
  Sender: FDA-Public Use
  Company Number: US-AMNEAL PHARMACEUTICALS-2019AMN00500

PATIENT
  Age: 12 Year
  Sex: Female
  Weight: 50.79 kg

DRUGS (2)
  1. LEVOTHYROXINE SODIUM. [Concomitant]
     Active Substance: LEVOTHYROXINE SODIUM
     Indication: PRODUCT USED FOR UNKNOWN INDICATION
     Dosage: 37.5 MCG, 1X/DAY
     Route: 048
  2. OXCARBAZEPINE. [Suspect]
     Active Substance: OXCARBAZEPINE
     Indication: SEIZURE
     Dosage: 3 ML, 1X/DAY, AT NIGHT
     Route: 048
     Dates: start: 2017

REACTIONS (5)
  - Inappropriate affect [Recovered/Resolved]
  - Concomitant disease aggravated [Recovered/Resolved]
  - Disturbance in attention [Recovered/Resolved]
  - Middle insomnia [Recovered/Resolved]
  - Mood swings [Recovered/Resolved]

NARRATIVE: CASE EVENT DATE: 20190301
